FAERS Safety Report 4364760-0 (Version None)
Quarter: 2004Q2

REPORT INFORMATION
  Report Type: 
  Country: None (occurrence: None)
  Receive Date: 20040521
  Receipt Date: 20040504
  Transmission Date: 20050107
  Serious: Yes (Other)
  Sender: FDA-Public Use
  Company Number: US_0405102840

PATIENT
  Sex: Male

DRUGS (3)
  1. ZYPREXA [Suspect]
  2. ZOLOFT [Concomitant]
  3. DESYREL (TRAZADONE HYDROCHLORIDE) [Concomitant]

REACTIONS (3)
  - MANIA [None]
  - PHYSICAL ASSAULT [None]
  - THEFT [None]
